FAERS Safety Report 16554474 (Version 1)
Quarter: 2019Q3

REPORT INFORMATION
  Report Type: Spontaneous
  Country: US (occurrence: US)
  Receive Date: 20190710
  Receipt Date: 20190710
  Transmission Date: 20191004
  Serious: Yes (Death, Hospitalization)
  Sender: FDA-Public Use
  Company Number: US-MYLANLABS-2019M1064274

PATIENT
  Age: 30 Year
  Sex: Male

DRUGS (1)
  1. FENTANYL. [Suspect]
     Active Substance: FENTANYL
     Indication: PRODUCT USED FOR UNKNOWN INDICATION
     Dosage: 6 BAGS
     Route: 055

REACTIONS (20)
  - Systemic inflammatory response syndrome [Fatal]
  - Brain death [Fatal]
  - Compartment syndrome [Fatal]
  - Hypotension [Fatal]
  - Multiple organ dysfunction syndrome [Fatal]
  - Overdose [Fatal]
  - Unresponsive to stimuli [Fatal]
  - Tachycardia [Fatal]
  - Mydriasis [Fatal]
  - Rhabdomyolysis [Fatal]
  - Aspartate aminotransferase increased [Fatal]
  - Thrombosis [Fatal]
  - Pupil fixed [Fatal]
  - Areflexia [Fatal]
  - Brain injury [Fatal]
  - Acute kidney injury [Fatal]
  - Brain stem syndrome [Fatal]
  - Hyperkalaemia [Fatal]
  - Alanine aminotransferase increased [Fatal]
  - Brain oedema [Fatal]
